FAERS Safety Report 9780376 (Version 2)
Quarter: 2014Q1

REPORT INFORMATION
  Report Type: Spontaneous
  Country: US (occurrence: US)
  Receive Date: 20131224
  Receipt Date: 20140109
  Transmission Date: 20141002
  Serious: Yes (Death)
  Sender: FDA-Public Use
  Company Number: US-BIOGENIDEC-2013BI121044

PATIENT
  Age: 61 Year
  Sex: Female

DRUGS (9)
  1. TYSABRI [Suspect]
     Indication: MULTIPLE SCLEROSIS
     Route: 042
     Dates: start: 20110114, end: 20131014
  2. SYNTHROID [Concomitant]
     Indication: HYPOTHYROIDISM
     Dates: start: 200610
  3. ABILIFY [Concomitant]
  4. PREMARIN [Concomitant]
     Indication: HORMONE REPLACEMENT THERAPY
  5. LISINOPRIL [Concomitant]
     Indication: BLOOD PRESSURE
  6. AMBIEN [Concomitant]
     Indication: INSOMNIA
  7. CYMBALTA [Concomitant]
     Indication: DEPRESSION
  8. LAMICTAL [Concomitant]
  9. PROVIGIL [Concomitant]

REACTIONS (1)
  - Anaphylactic shock [Fatal]
